FAERS Safety Report 7372900-4 (Version None)
Quarter: 2011Q1

REPORT INFORMATION
  Report Type: 
  Country: None (occurrence: None)
  Receive Date: 20110324
  Receipt Date: 20110321
  Transmission Date: 20110831
  Serious: Yes (Other)
  Sender: FDA-Public Use
  Company Number: IT-PFIZER INC-2011061551

PATIENT
  Age: 68 Year
  Sex: Female

DRUGS (6)
  1. IRBESARTAN [Concomitant]
  2. NIFEDICOR [Concomitant]
     Dosage: 10 DROPS
     Route: 048
     Dates: start: 20101211, end: 20101211
  3. XANAX [Suspect]
     Indication: DEPRESSION
     Dosage: 15 DROPS DAILY
     Route: 048
     Dates: start: 20080101, end: 20101211
  4. ZOLOFT [Concomitant]
     Dosage: 50 MG, UNK
  5. CARDURA [Concomitant]
  6. VASERETIC [Concomitant]

REACTIONS (2)
  - ANXIETY [None]
  - HYPERTENSION [None]
